FAERS Safety Report 4764615-3 (Version None)
Quarter: 2005Q3

REPORT INFORMATION
  Report Type: 
  Country: None (occurrence: None)
  Receive Date: 20050909
  Receipt Date: 20041012
  Transmission Date: 20060218
  Serious: Yes (Hospitalization)
  Sender: FDA-Public Use
  Company Number: 2004GB02468

PATIENT
  Age: 30415 Day
  Sex: Female
  Weight: 55 kg

DRUGS (7)
  1. SEROQUEL [Suspect]
     Route: 048
     Dates: start: 20030604
  2. ATENOLOL [Suspect]
     Indication: ANGINA PECTORIS
     Route: 048
     Dates: start: 19990101, end: 20040915
  3. ASPIRIN [Concomitant]
     Indication: PROPHYLAXIS
     Route: 048
  4. PARACETAMOL [Concomitant]
     Indication: ANALGESIC EFFECT
     Route: 048
  5. AMITRIPTYLINE HCL [Concomitant]
     Indication: SLEEP DISORDER
     Route: 048
  6. SENNA [Concomitant]
     Indication: CONSTIPATION
     Route: 048
  7. ATORVASTATIN CALCIUM [Concomitant]
     Indication: HYPERCHOLESTEROLAEMIA
     Route: 048

REACTIONS (4)
  - BALANCE DISORDER [None]
  - FALL [None]
  - FRACTURE [None]
  - UPPER LIMB FRACTURE [None]
